FAERS Safety Report 7419811-3 (Version None)
Quarter: 2011Q2

REPORT INFORMATION
  Report Type: 
  Country: None (occurrence: None)
  Receive Date: 20110413
  Receipt Date: 20110413
  Transmission Date: 20111010
  Serious: Yes (Other)
  Sender: FDA-Public Use
  Company Number: None

PATIENT
  Sex: Female
  Weight: 68.0396 kg

DRUGS (1)
  1. ALENDRONATE SODIUM [Suspect]
     Indication: BONE LOSS
     Dosage: 35MG 1 WEEKLY
     Dates: start: 20100101, end: 20110201

REACTIONS (1)
  - ARTHRALGIA [None]
